FAERS Safety Report 8242944-9 (Version None)
Quarter: 2012Q1

REPORT INFORMATION
  Report Type: 
  Country: None (occurrence: None)
  Receive Date: 20120329
  Receipt Date: 20120329
  Transmission Date: 20120608
  Serious: Yes (Life-Threatening, Hospitalization, Disabling)
  Sender: FDA-Public Use
  Company Number: None

PATIENT
  Age: 67 Year
  Sex: Male
  Weight: 131.54 kg

DRUGS (3)
  1. ZYVOX [Suspect]
     Indication: STAPHYLOCOCCAL INFECTION
     Dates: start: 20120309, end: 20120325
  2. ZYVOX [Suspect]
     Indication: PANCREATIC PSEUDOCYST
     Dates: start: 20120309, end: 20120325
  3. CIPROFLOXACIN [Concomitant]
     Indication: PANCREATIC PSEUDOCYST

REACTIONS (11)
  - DEAFNESS [None]
  - HYPERHIDROSIS [None]
  - SKIN DISCOLOURATION [None]
  - GENERAL PHYSICAL HEALTH DETERIORATION [None]
  - RHABDOMYOLYSIS [None]
  - ASTHENIA [None]
  - INJURY [None]
  - MUSCULOSKELETAL PAIN [None]
  - HYPOTENSION [None]
  - RENAL FAILURE ACUTE [None]
  - MYOPATHY [None]
